FAERS Safety Report 7502887-2 (Version None)
Quarter: 2011Q2

REPORT INFORMATION
  Report Type: 
  Country: None (occurrence: None)
  Receive Date: 20110525
  Receipt Date: 20100824
  Transmission Date: 20111010
  Serious: No
  Sender: FDA-Public Use
  Company Number: US-NOVEN-ALL1-2010-04476

PATIENT
  Sex: Female
  Weight: 28.118 kg

DRUGS (7)
  1. RISPERDAL [Concomitant]
     Dosage: UNK, UNKNOWN
     Route: 048
  2. ZOLOFT [Concomitant]
     Dosage: .25 MG, 3X/DAY:TID
     Route: 048
  3. ZOLOFT [Concomitant]
     Dosage: UNK MG, UNKNOWN
     Route: 048
  4. RISPERDAL [Concomitant]
     Dosage: .25 MG, 3X/DAY:TID
     Route: 048
  5. DAYTRANA [Suspect]
     Dosage: 20 MG, 1X/DAY:QD
     Route: 062
     Dates: end: 20090101
  6. ADDERALL 10 [Concomitant]
     Dosage: 10 MG, 1X/DAY:QD
     Route: 048
  7. DAYTRANA [Suspect]
     Dosage: 30 MG, 1X/DAY:QD
     Route: 062
     Dates: start: 20090101

REACTIONS (8)
  - EMOTIONAL DISORDER [None]
  - DEPRESSED MOOD [None]
  - APPLICATION SITE PAPULES [None]
  - DRUG INEFFECTIVE [None]
  - PRODUCT QUALITY ISSUE [None]
  - APPLICATION SITE PAIN [None]
  - APPLICATION SITE ERYTHEMA [None]
  - WRONG TECHNIQUE IN DRUG USAGE PROCESS [None]
